FAERS Safety Report 9241388 (Version 1)
Quarter: 2013Q1

REPORT INFORMATION
  Report Type: Spontaneous
  Country: US (occurrence: None)
  Receive Date: 20121114
  Receipt Date: 20121114
  Transmission Date: 20140127
  Serious: Yes (Hospitalization)
  Sender: FDA-Public Use
  Company Number: 2012-003215

PATIENT
  Age: 25 Year
  Sex: Female

DRUGS (1)
  1. LO LOESTRIN FE [Suspect]
     Indication: CONTRACEPTION
     Route: 048
     Dates: start: 20110623, end: 20120506

REACTIONS (3)
  - Deep vein thrombosis [None]
  - Pain in extremity [None]
  - Oedema peripheral [None]
